FAERS Safety Report 4356468-2 (Version None)
Quarter: 2004Q2

REPORT INFORMATION
  Report Type: 
  Country: None (occurrence: None)
  Receive Date: 20040506
  Receipt Date: 20040423
  Transmission Date: 20050107
  Serious: No
  Sender: FDA-Public Use
  Company Number: 04H-163-0259150-00

PATIENT
  Age: 74 Year
  Sex: Male

DRUGS (2)
  1. FENTANYL CITRATE [Suspect]
     Indication: SEDATION
     Dosage: 100 MCG, ONCE, INTRAVENOUS
     Route: 042
     Dates: start: 20040423, end: 20040423
  2. MIDAZOLAM HYDROCHLORIDE [Concomitant]

REACTIONS (2)
  - COMA [None]
  - DYSPNOEA [None]
